FAERS Safety Report 23081084 (Version 1)
Quarter: 2023Q4

REPORT INFORMATION
  Report Type: Spontaneous
  Country: FR (occurrence: FR)
  Receive Date: 20231018
  Receipt Date: 20231018
  Transmission Date: 20240110
  Serious: Yes (Hospitalization)
  Sender: FDA-Public Use
  Company Number: None

PATIENT
  Age: 42 Year
  Sex: Male
  Weight: 72 kg

DRUGS (11)
  1. TOPIRAMATE [Suspect]
     Active Substance: TOPIRAMATE
     Indication: Product used for unknown indication
     Dosage: 1 COMPRIME 100MG MATIN, MIDI ET SOIR
     Route: 048
  2. GLYCYRRHIZIN [Suspect]
     Active Substance: GLYCYRRHIZIN
     Indication: Substance abuse
     Route: 065
     Dates: end: 20230209
  3. CANNABIDIOL [Suspect]
     Active Substance: CANNABIDIOL
     Indication: Lennox-Gastaut syndrome
     Dosage: 370 MG MATIN ET SOIR
     Route: 065
     Dates: start: 202201, end: 20230903
  4. CANNABIDIOL [Suspect]
     Active Substance: CANNABIDIOL
     Dosage: 300MG MATIN ; 350MG SOIR
     Dates: start: 20230803
  5. CLOBAZAM [Concomitant]
     Active Substance: CLOBAZAM
     Dosage: 10MG LE SOIR
     Route: 065
  6. PHENOBARBITAL [Concomitant]
     Active Substance: PHENOBARBITAL
     Dosage: 5 COMPRIMES LE SOIR
     Route: 065
  7. VALPROATE SODIUM [Concomitant]
     Active Substance: VALPROATE SODIUM
     Dosage: 1 SACHET 500MG  MATIN ET SOIR
     Route: 065
  8. VALPROATE SODIUM [Concomitant]
     Active Substance: VALPROATE SODIUM
     Dosage: 1 SACHET 1000MG  MATIN, MIDI ET SOIR
     Route: 065
  9. CHOLECALCIFEROL [Concomitant]
     Active Substance: CHOLECALCIFEROL
     Dosage: 1 AMPOULE TOUS LES 3 MOIS
     Route: 065
  10. LAMICTAL [Concomitant]
     Active Substance: LAMOTRIGINE
     Indication: Product used for unknown indication
     Dosage: 200MG MATIN, 0MG MIDI ET 200MG SOIR
     Route: 065
  11. CLONAZEPAM [Concomitant]
     Active Substance: CLONAZEPAM
     Indication: Product used for unknown indication
     Dosage: 1 COMPRIME LE SOIR
     Route: 065

REACTIONS (1)
  - Hypokalaemia [Recovered/Resolved]

NARRATIVE: CASE EVENT DATE: 20230116
